FAERS Safety Report 4504973-8 (Version None)
Quarter: 2005Q1

REPORT INFORMATION
  Report Type: 
  Country: None (occurrence: None)
  Receive Date: 20041015
  Receipt Date: 20031218
  Transmission Date: 20050727
  Serious: Yes (Other)
  Sender: FDA-Public Use
  Company Number: 2003125905

PATIENT
  Sex: Male
  Weight: 68.0396 kg

DRUGS (5)
  1. NEURONTIN [Suspect]
     Indication: AFFECTIVE DISORDER
     Dosage: 2400 MG (TID)
     Dates: start: 20030301, end: 20031201
  2. NEURONTIN [Suspect]
     Indication: CONVULSION
     Dosage: 2400 MG (TID)
     Dates: start: 20030301, end: 20031201
  3. ALL OTHER THERAPEUTIC PRODUCTS (ALL OTHER THERAPEUTIC PRODUCTS) [Suspect]
     Indication: ILL-DEFINED DISORDER
     Dates: start: 20030101
  4. TRAZODONE HCL [Concomitant]
  5. LANSOPRAZOLE [Concomitant]

REACTIONS (3)
  - INTENTIONAL MISUSE [None]
  - SUICIDE ATTEMPT [None]
  - VOMITING [None]
